FAERS Safety Report 5020110-8 (Version None)
Quarter: 2006Q2

REPORT INFORMATION
  Report Type: 
  Country: None (occurrence: None)
  Receive Date: 20060607
  Receipt Date: 20051111
  Transmission Date: 20061013
  Serious: Yes (Hospitalization)
  Sender: FDA-Public Use
  Company Number: US-ROCHE-425546

PATIENT
  Age: 61 Year
  Sex: Female
  Weight: 67.5 kg

DRUGS (4)
  1. CAPECITABINE [Suspect]
     Dosage: ON DAYS 1-15 AND 15-21
     Route: 048
     Dates: start: 20050627
  2. CAPECITABINE [Suspect]
     Dosage: DOSE REDUCED BY 25%
     Route: 048
     Dates: start: 20050801
  3. OXALIPLATIN [Suspect]
     Dosage: ON DAYS 1 AND 15
     Route: 042
     Dates: start: 20050627
  4. OXALIPLATIN [Suspect]
     Dosage: DOSE REDUCED BY 25%
     Route: 042
     Dates: start: 20050801

REACTIONS (11)
  - ABDOMINAL PAIN [None]
  - ANAEMIA [None]
  - ANOREXIA [None]
  - DEHYDRATION [None]
  - DIARRHOEA [None]
  - ENTERITIS [None]
  - HYPOALBUMINAEMIA [None]
  - HYPOKALAEMIA [None]
  - HYPOPHOSPHATAEMIA [None]
  - NEUTROPENIA [None]
  - PALMAR-PLANTAR ERYTHRODYSAESTHESIA SYNDROME [None]
